FAERS Safety Report 17428893 (Version 14)
Quarter: 2021Q3

REPORT INFORMATION
  Report Type: Report from Study
  Country: US (occurrence: US)
  Receive Date: 20200218
  Receipt Date: 20210819
  Transmission Date: 20211014
  Serious: Yes (Hospitalization, Other)
  Sender: FDA-Public Use
  Company Number: US-SHIRE-US202006248

PATIENT
  Sex: Female
  Weight: 99 kg

DRUGS (40)
  1. LEVAQUIN [Concomitant]
     Active Substance: LEVOFLOXACIN
     Dosage: UNK
     Route: 065
  2. FAMOTIDINE. [Concomitant]
     Active Substance: FAMOTIDINE
     Route: 065
  3. CUVITRU [Suspect]
     Active Substance: HUMAN IMMUNOGLOBULIN G
     Dosage: 18 GRAM, 1/WEEK
     Route: 058
     Dates: start: 20170630
  4. ACETAMINOPHEN. [Concomitant]
     Active Substance: ACETAMINOPHEN
     Dosage: UNK
     Route: 065
  5. EPIPEN [Concomitant]
     Active Substance: EPINEPHRINE
     Dosage: UNK
     Route: 065
  6. DOXYCYCLINE. [Concomitant]
     Active Substance: DOXYCYCLINE
     Dosage: UNK
     Route: 065
  7. MUPIROCIN. [Concomitant]
     Active Substance: MUPIROCIN
     Dosage: UNK
     Route: 065
  8. FLUTICASONE. [Concomitant]
     Active Substance: FLUTICASONE
     Dosage: UNK
     Route: 065
  9. DOXYCYCLINE HYCLATE. [Concomitant]
     Active Substance: DOXYCYCLINE HYCLATE
     Dosage: UNK
     Route: 065
  10. SINGULAIR [Concomitant]
     Active Substance: MONTELUKAST SODIUM
     Dosage: UNK
     Route: 065
  11. AMOXICILLIN. [Concomitant]
     Active Substance: AMOXICILLIN
     Route: 065
  12. MS CONTIN [Concomitant]
     Active Substance: MORPHINE SULFATE
     Route: 065
  13. FIORICET [Concomitant]
     Active Substance: ACETAMINOPHEN\BUTALBITAL\CAFFEINE
     Dosage: UNK
     Route: 065
  14. LIDOCAINE. [Concomitant]
     Active Substance: LIDOCAINE
     Dosage: UNK
     Route: 065
  15. CEFPROZIL. [Concomitant]
     Active Substance: CEFPROZIL
     Dosage: UNK
     Route: 065
  16. LYRICA [Concomitant]
     Active Substance: PREGABALIN
     Dosage: UNK
     Route: 065
  17. VITAMIN D3 [Concomitant]
     Active Substance: CHOLECALCIFEROL
     Dosage: UNK
     Route: 065
  18. BUPROPION. [Concomitant]
     Active Substance: BUPROPION
     Dosage: UNK
     Route: 065
  19. FOLIC ACID. [Concomitant]
     Active Substance: FOLIC ACID
     Dosage: UNK
     Route: 065
  20. NEXIUM I.V. [Concomitant]
     Active Substance: ESOMEPRAZOLE SODIUM
     Dosage: UNK
     Route: 065
  21. LEVOTHYROXINE. [Concomitant]
     Active Substance: LEVOTHYROXINE
     Dosage: UNK
     Route: 065
  22. DIPHENHYDRAMINE. [Concomitant]
     Active Substance: DIPHENHYDRAMINE
     Dosage: UNK
     Route: 065
  23. FENOFIBRATE. [Concomitant]
     Active Substance: FENOFIBRATE
     Dosage: UNK
     Route: 065
  24. CYANOCOBALAMIN. [Concomitant]
     Active Substance: CYANOCOBALAMIN
     Dosage: UNK
     Route: 065
  25. CUVITRU [Suspect]
     Active Substance: HUMAN IMMUNOGLOBULIN G
     Indication: IMMUNODEFICIENCY COMMON VARIABLE
     Dosage: 18 GRAM, 1/WEEK
     Route: 058
     Dates: start: 20170603
  26. EPINEPHRINE. [Concomitant]
     Active Substance: EPINEPHRINE
     Dosage: UNK
     Route: 065
  27. DIFLUCAN [Concomitant]
     Active Substance: FLUCONAZOLE
     Route: 065
  28. SIMVASTATIN. [Concomitant]
     Active Substance: SIMVASTATIN
     Dosage: UNK
     Route: 065
  29. ZEASORB [Concomitant]
     Active Substance: MICONAZOLE NITRATE
     Dosage: UNK
     Route: 065
  30. LISINOPRIL. [Concomitant]
     Active Substance: LISINOPRIL
     Dosage: UNK
     Route: 065
  31. ZANAFLEX [Concomitant]
     Active Substance: TIZANIDINE HYDROCHLORIDE
     Dosage: UNK
     Route: 065
  32. ZETIA [Concomitant]
     Active Substance: EZETIMIBE
     Dosage: UNK
     Route: 065
  33. FLUTICASONE PROPIONATE. [Concomitant]
     Active Substance: FLUTICASONE PROPIONATE
     Dosage: UNK
     Route: 065
  34. CUVITRU [Suspect]
     Active Substance: HUMAN IMMUNOGLOBULIN G
     Dosage: 18 GRAM, 1/WEEK
     Route: 058
     Dates: start: 20170711
  35. CLARITIN [Concomitant]
     Active Substance: LORATADINE
  36. ZOFRAN [Concomitant]
     Active Substance: ONDANSETRON HYDROCHLORIDE
     Dosage: UNK
     Route: 065
  37. MIRALAX [Concomitant]
     Active Substance: POLYETHYLENE GLYCOL 3350
     Dosage: UNK
     Route: 065
  38. DILAUDID [Concomitant]
     Active Substance: HYDROMORPHONE HYDROCHLORIDE
     Dosage: UNK
     Route: 065
  39. AMOXICILLIN AND CLAVUNATE POTASSIUM [Concomitant]
     Active Substance: AMOXICILLIN\CLAVULANATE POTASSIUM
     Dosage: UNK
     Route: 065
  40. LIDOCAINE/PRILOCAINE [Concomitant]
     Active Substance: LIDOCAINE\PRILOCAINE
     Dosage: UNK
     Route: 065

REACTIONS (20)
  - Weight increased [Unknown]
  - Fungal skin infection [Unknown]
  - Pain [Unknown]
  - Pyrexia [Unknown]
  - Sinusitis [Unknown]
  - Scar [Unknown]
  - Burning sensation [Unknown]
  - Infusion site pruritus [Unknown]
  - Headache [Unknown]
  - Infusion site pain [Unknown]
  - Infusion site reaction [Unknown]
  - Surgery [Unknown]
  - Feeling hot [Unknown]
  - Hip arthroplasty [Unknown]
  - Infection [Unknown]
  - Post procedural infection [Unknown]
  - Shoulder arthroplasty [Unknown]
  - Infusion site haemorrhage [Unknown]
  - Skin laceration [Unknown]
  - Nausea [Unknown]
